FAERS Safety Report 18060220 (Version 2)
Quarter: 2021Q3

REPORT INFORMATION
  Report Type: Other
  Country: CA (occurrence: CA)
  Receive Date: 20200723
  Receipt Date: 20210720
  Transmission Date: 20211014
  Serious: Yes (Life-Threatening, Hospitalization, Other)
  Sender: FDA-Public Use
  Company Number: CA-APOTEX-2020AP013948

PATIENT
  Age: 81 Year
  Sex: Female

DRUGS (12)
  1. RAMIPRIL. [Suspect]
     Active Substance: RAMIPRIL
     Indication: TRANSIENT ISCHAEMIC ATTACK
     Dosage: 2.5 MILLIGRAM, QD
     Route: 048
  2. EPIPEN JR [Suspect]
     Active Substance: EPINEPHRINE
     Indication: ANAPHYLACTIC REACTION
     Dosage: 1 MILLIGRAM, QD
     Route: 030
  3. SYNTHROID [Concomitant]
     Active Substance: LEVOTHYROXINE SODIUM
     Indication: HYPOTHYROIDISM
     Dosage: 25 MICROGRAM, QD
     Route: 065
  4. RAMIPRIL. [Suspect]
     Active Substance: RAMIPRIL
     Indication: HYPERTENSION
     Dosage: UNK
     Route: 065
  5. CLOPIDOGREL [Suspect]
     Active Substance: CLOPIDOGREL BISULFATE
     Indication: PRODUCT USED FOR UNKNOWN INDICATION
     Dosage: UNK
     Route: 065
  6. EPIPEN [Suspect]
     Active Substance: EPINEPHRINE
     Indication: ANAPHYLACTIC REACTION
     Dosage: 1 MILLIGRAM
     Route: 030
  7. NEXIUM [Concomitant]
     Active Substance: ESOMEPRAZOLE MAGNESIUM
     Indication: HYPERTENSION
     Dosage: 40 MILLIGRAM, QD
     Route: 065
  8. FUROSEMIDE. [Concomitant]
     Active Substance: FUROSEMIDE
     Indication: DYSLIPIDAEMIA
  9. PRAVACHOL [Concomitant]
     Active Substance: PRAVASTATIN SODIUM
     Indication: HYPOTHYROIDISM
     Dosage: 40 MILLIGRAM, QD
     Route: 065
  10. ESOMEPRAZOLE MAGNESIUM TRIHYDRATE [Concomitant]
     Active Substance: ESOMEPRAZOLE MAGNESIUM
     Indication: PRODUCT USED FOR UNKNOWN INDICATION
     Dosage: UNK
     Route: 065
  11. FUROSEMIDE. [Concomitant]
     Active Substance: FUROSEMIDE
     Indication: HYPERTENSION
     Dosage: UNK
     Route: 065
  12. PRAVACHOL [Concomitant]
     Active Substance: PRAVASTATIN SODIUM
     Indication: DYSLIPIDAEMIA

REACTIONS (9)
  - Device failure [Recovered/Resolved]
  - Swollen tongue [Recovered/Resolved]
  - Needle issue [Recovered/Resolved]
  - Product dose omission issue [Recovered/Resolved]
  - Drug ineffective [Recovered/Resolved]
  - Anaphylactic reaction [Recovered/Resolved]
  - Circumstance or information capable of leading to medication error [Recovered/Resolved]
  - Device use issue [Recovered/Resolved]
  - Drug hypersensitivity [Recovered/Resolved]
